FAERS Safety Report 4851395-6 (Version None)
Quarter: 2005Q4

REPORT INFORMATION
  Report Type: 
  Country: None (occurrence: None)
  Receive Date: 20051208
  Receipt Date: 20051125
  Transmission Date: 20060501
  Serious: Yes (Other)
  Sender: FDA-Public Use
  Company Number: HQWYE733729NOV05

PATIENT
  Age: 43 Year
  Sex: Female

DRUGS (14)
  1. MYLOTARG [Suspect]
     Indication: ACUTE MYELOID LEUKAEMIA RECURRENT
     Dosage: A SINGLE 9 MG/M^2 DOSE  INTRAVENOUS DRIP
     Route: 041
     Dates: start: 20051006, end: 20051006
  2. MYLOTARG [Suspect]
     Indication: ACUTE MYELOID LEUKAEMIA RECURRENT
     Dosage: A SINGLE 9 MG/M^2 DOSE  INTRAVENOUS DRIP
     Route: 041
     Dates: start: 20051027, end: 20051027
  3. BESTATIN (UBENIMEX) [Concomitant]
  4. MEROPEN (MEROPENEM) [Concomitant]
  5. VANCOMYCIN HYDROCHLORIDE [Concomitant]
  6. PRODIF (FOSFLUCONAZOLE) [Concomitant]
  7. ZOVIRAX [Concomitant]
  8. OMEPRAZOLE [Concomitant]
  9. FOY (GABEXATE MESILATE) [Concomitant]
  10. MORPHINE [Concomitant]
  11. UNSPECIFIED ANTIBIOTIC (UNSPECIFIED ANTIBIOTIC) [Concomitant]
  12. TARGOCID [Concomitant]
  13. ITRACONAZOLE [Concomitant]
  14. URSODIOL [Concomitant]

REACTIONS (5)
  - AGRANULOCYTOSIS [None]
  - BLOOD ALKALINE PHOSPHATASE INCREASED [None]
  - BLOOD BILIRUBIN INCREASED [None]
  - BODY TEMPERATURE INCREASED [None]
  - LIVER DISORDER [None]
